FAERS Safety Report 12298037 (Version 1)
Quarter: 2016Q2

REPORT INFORMATION
  Report Type: Spontaneous
  Country: US (occurrence: US)
  Receive Date: 20160422
  Receipt Date: 20160422
  Transmission Date: 20160815
  Serious: Yes (Life-Threatening, Hospitalization, Other)
  Sender: FDA-Public Use
  Company Number: US-ASTRAZENECA-2016SE40637

PATIENT
  Sex: Male

DRUGS (1)
  1. BYDUREON [Suspect]
     Active Substance: EXENATIDE
     Indication: TYPE 2 DIABETES MELLITUS
     Route: 058
     Dates: start: 20160404, end: 20160404

REACTIONS (8)
  - Lipase increased [Unknown]
  - Shock [Unknown]
  - Pyrexia [Unknown]
  - Rhabdomyolysis [Unknown]
  - Flushing [Unknown]
  - Gastrointestinal disorder [Unknown]
  - Liver function test increased [Unknown]
  - Vomiting [Recovered/Resolved]

NARRATIVE: CASE EVENT DATE: 201604
